FAERS Safety Report 16216691 (Version 1)
Quarter: 2019Q2

REPORT INFORMATION
  Report Type: Spontaneous
  Country: US (occurrence: US)
  Receive Date: 20190419
  Receipt Date: 20190419
  Transmission Date: 20190711
  Serious: No
  Sender: FDA-Public Use
  Company Number: US-BIOGEN-2019BI00725654

PATIENT
  Sex: Female

DRUGS (1)
  1. TECFIDERA [Suspect]
     Active Substance: DIMETHYL FUMARATE
     Indication: MULTIPLE SCLEROSIS
     Route: 048
     Dates: start: 20130405, end: 20130610

REACTIONS (6)
  - Drug intolerance [Unknown]
  - Abdominal pain upper [Unknown]
  - Visual acuity reduced [Unknown]
  - Vomiting [Unknown]
  - Feeling abnormal [Unknown]
  - Hot flush [Recovered/Resolved]
